FAERS Safety Report 5891033-7 (Version None)
Quarter: 2008Q3

REPORT INFORMATION
  Report Type: 
  Country: None (occurrence: None)
  Receive Date: 20080922
  Receipt Date: 20080912
  Transmission Date: 20090109
  Serious: Yes (Life-Threatening, Hospitalization)
  Sender: FDA-Public Use
  Company Number: US-KINGPHARMUSA00001-K200801071

PATIENT

DRUGS (3)
  1. ALTACE [Suspect]
     Indication: MALIGNANT HYPERTENSION
     Dosage: 5 MG, QD
     Route: 048
     Dates: end: 20080719
  2. DELIX PLUS [Suspect]
     Indication: MALIGNANT HYPERTENSION
     Dosage: 1 TABLET, QD
     Route: 048
     Dates: end: 20080719
  3. METOPROLOL TARTRATE [Concomitant]
     Dosage: 95 MG, UNK
     Route: 048

REACTIONS (3)
  - CONVULSION [None]
  - HYPONATRAEMIA [None]
  - PUPILS UNEQUAL [None]
